FAERS Safety Report 25691187 (Version 1)
Quarter: 2025Q3

REPORT INFORMATION
  Report Type: Spontaneous
  Country: US (occurrence: US)
  Receive Date: 20250818
  Receipt Date: 20250818
  Transmission Date: 20251020
  Serious: No
  Sender: APOTEX
  Company Number: US-APOTEX-2025AP011402

PATIENT
  Age: 67 Year
  Sex: Male

DRUGS (1)
  1. LENALIDOMIDE [Suspect]
     Active Substance: LENALIDOMIDE
     Indication: Plasma cell myeloma
     Dosage: 1 DOSAGE FORM, QD (1 CAPSULE A DAY FROM DAY 1 THROUGH 21 OF 28-DAY CYCLE (7 DAYS OFF))
     Route: 048
     Dates: start: 20250717

REACTIONS (3)
  - Product dose omission issue [Unknown]
  - Product distribution issue [Unknown]
  - No adverse event [Unknown]

NARRATIVE: CASE EVENT DATE: 20250717
